FAERS Safety Report 7910634-5 (Version None)
Quarter: 2011Q4

REPORT INFORMATION
  Report Type: 
  Country: None (occurrence: None)
  Receive Date: 20111111
  Receipt Date: 20111101
  Transmission Date: 20120403
  Serious: Yes (Hospitalization)
  Sender: FDA-Public Use
  Company Number: DK-NOVOPROD-338194

PATIENT

DRUGS (1)
  1. LIRAGLUTIDE FLEXPEN [Suspect]
     Indication: OBESITY
     Dosage: 3.0 MG, QD
     Route: 058
     Dates: start: 20110902

REACTIONS (2)
  - DIARRHOEA [None]
  - PYREXIA [None]
